FAERS Safety Report 7008097-X (Version None)
Quarter: 2010Q3

REPORT INFORMATION
  Report Type: 
  Country: None (occurrence: None)
  Receive Date: 20100922
  Receipt Date: 20100909
  Transmission Date: 20110219
  Serious: Yes (Hospitalization)
  Sender: FDA-Public Use
  Company Number: DE-US-EMD SERONO, INC.-7017266

PATIENT
  Sex: Female
  Weight: 58 kg

DRUGS (5)
  1. REBIF [Suspect]
     Indication: MULTIPLE SCLEROSIS
     Route: 058
     Dates: start: 20050311
  2. AMITRIPTYLINE HCL [Concomitant]
     Indication: DEPRESSION
     Route: 048
     Dates: start: 20070219
  3. TRAMADOL [Concomitant]
     Indication: HEADACHE
     Route: 048
     Dates: start: 20050101
  4. METYPRED [Concomitant]
  5. OMED [Concomitant]

REACTIONS (1)
  - PULMONARY HYPERTENSION [None]
